FAERS Safety Report 12737354 (Version 1)
Quarter: 2016Q3

REPORT INFORMATION
  Report Type: Spontaneous
  Country: AU (occurrence: US)
  Receive Date: 20160912
  Receipt Date: 20160912
  Transmission Date: 20161109
  Serious: Yes (Other)
  Sender: FDA-Public Use
  Company Number: None

PATIENT
  Age: 77 Year
  Sex: Male
  Weight: 111 kg

DRUGS (1)
  1. LONITEN [Suspect]
     Active Substance: MINOXIDIL
     Indication: BLOOD PRESSURE MEASUREMENT
     Dates: start: 20140901

REACTIONS (2)
  - Balance disorder [None]
  - Blood pressure decreased [None]

NARRATIVE: CASE EVENT DATE: 20160901
